FAERS Safety Report 15674415 (Version 1)
Quarter: 2018Q4

REPORT INFORMATION
  Report Type: Report from Study
  Country: US (occurrence: US)
  Receive Date: 20181130
  Receipt Date: 20181130
  Transmission Date: 20190205
  Serious: Yes (Hospitalization)
  Sender: FDA-Public Use
  Company Number: US-ACADIA PHARMACEUTICALS INC.-ACA-2018-011008

PATIENT
  Age: 75 Year
  Sex: Female

DRUGS (1)
  1. NUPLAZID [Suspect]
     Active Substance: PIMAVANSERIN TARTRATE
     Indication: PARKINSON^S DISEASE
     Dosage: 34 MG, UNK
     Route: 065
     Dates: start: 2018, end: 2018

REACTIONS (2)
  - Dementia [Unknown]
  - Hallucination [Unknown]

NARRATIVE: CASE EVENT DATE: 20181127
